FAERS Safety Report 14460500 (Version 2)
Quarter: 2018Q3

REPORT INFORMATION
  Report Type: Spontaneous
  Country: US (occurrence: US)
  Receive Date: 20180130
  Receipt Date: 20180822
  Transmission Date: 20181010
  Serious: No
  Sender: FDA-Public Use
  Company Number: US-GLAXOSMITHKLINE-US2018GSK015124

PATIENT
  Sex: Male

DRUGS (1)
  1. AVODART [Suspect]
     Active Substance: DUTASTERIDE
     Dosage: UNK UNK, U

REACTIONS (6)
  - Skin irritation [Unknown]
  - Blood testosterone increased [Unknown]
  - Alopecia [Unknown]
  - Urticaria [Not Recovered/Not Resolved]
  - Seborrhoea [Unknown]
  - Pain [Not Recovered/Not Resolved]
